FAERS Safety Report 12555692 (Version 1)
Quarter: 2016Q3

REPORT INFORMATION
  Report Type: Spontaneous
  Country: US (occurrence: None)
  Receive Date: 20160713
  Receipt Date: 20160713
  Transmission Date: 20161109
  Serious: No
  Sender: FDA-Public Use
  Company Number: None

PATIENT
  Sex: Female

DRUGS (1)
  1. CICLOPIROX GEL 0.77% PODIATRY CREAM GLENMARK PHARMACEUTICALS [Suspect]
     Active Substance: CICLOPIROX
     Dates: start: 20160328, end: 20160328

REACTIONS (7)
  - Dermatitis [None]
  - Burns second degree [None]
  - Gangrene [None]
  - Pain [None]
  - Onychomadesis [None]
  - Burns third degree [None]
  - Application site burn [None]

NARRATIVE: CASE EVENT DATE: 20160328
